FAERS Safety Report 7349008-7 (Version None)
Quarter: 2011Q1

REPORT INFORMATION
  Report Type: 
  Country: None (occurrence: None)
  Receive Date: 20110314
  Receipt Date: 20110302
  Transmission Date: 20110831
  Serious: Yes (Death, Hospitalization)
  Sender: FDA-Public Use
  Company Number: TR-CELGENEUS-161-21880-11030388

PATIENT
  Sex: Male
  Weight: 70 kg

DRUGS (2)
  1. DEXAMETHASONE [Concomitant]
     Indication: MYELOMA RECURRENCE
     Route: 065
     Dates: start: 20101220, end: 20110211
  2. REVLIMID [Suspect]
     Indication: MYELOMA RECURRENCE
     Route: 048
     Dates: start: 20101220, end: 20110211

REACTIONS (2)
  - ENTEROCOLITIS [None]
  - BRONCHOPULMONARY ASPERGILLOSIS [None]
